FAERS Safety Report 9180743 (Version 1)
Quarter: 2013Q1

REPORT INFORMATION
  Report Type: Spontaneous
  Country: BE (occurrence: BE)
  Receive Date: 20130322
  Receipt Date: 20130322
  Transmission Date: 20140127
  Serious: Yes (Other)
  Sender: FDA-Public Use
  Company Number: BE-JNJFOC-20130309209

PATIENT
  Sex: Female
  Weight: 78 kg

DRUGS (6)
  1. XARELTO [Suspect]
     Indication: CEREBROVASCULAR ACCIDENT PROPHYLAXIS
     Route: 048
  2. XARELTO [Suspect]
     Indication: ATRIAL FIBRILLATION
     Route: 048
  3. TEMESTA [Concomitant]
     Route: 065
  4. ALGOSTASE [Concomitant]
     Route: 065
  5. VALSARTAN [Concomitant]
     Route: 065
  6. EMCONCOR [Concomitant]
     Route: 065

REACTIONS (1)
  - Renal impairment [Recovered/Resolved]
